FAERS Safety Report 9652432 (Version 2)
Quarter: 2014Q1

REPORT INFORMATION
  Report Type: Spontaneous
  Country: US (occurrence: US)
  Receive Date: 20131029
  Receipt Date: 20140227
  Transmission Date: 20141002
  Serious: Yes (Hospitalization)
  Sender: FDA-Public Use
  Company Number: US-PFIZER INC-2013305745

PATIENT
  Age: 54 Year
  Sex: Male
  Weight: 74.83 kg

DRUGS (6)
  1. VIAGRA [Suspect]
     Indication: ERECTILE DYSFUNCTION
     Dosage: HALF TO FULL TABLET OF 100MG, AS NEEDED
     Route: 048
     Dates: start: 2008
  2. PERCOCET [Suspect]
     Indication: PAIN
     Dosage: UNK
  3. BUSPAR [Concomitant]
     Indication: ANXIETY
     Dosage: 10 MG, 3X/DAY
  4. ATIVAN [Concomitant]
     Indication: ANXIETY
     Dosage: 5 MG, 3X/DAY
  5. QUETIAPINE [Concomitant]
     Indication: SLEEP DISORDER
     Dosage: 50 MG, DAILY
  6. MORPHINE [Concomitant]
     Indication: PAIN
     Dosage: UNK

REACTIONS (4)
  - Accident [Unknown]
  - Hip fracture [Unknown]
  - Lower limb fracture [Unknown]
  - Foot fracture [Unknown]
